FAERS Safety Report 12454052 (Version 1)
Quarter: 2016Q2

REPORT INFORMATION
  Report Type: Spontaneous
  Country: DE (occurrence: DE)
  Receive Date: 20160610
  Receipt Date: 20160610
  Transmission Date: 20160815
  Serious: Yes (Other)
  Sender: FDA-Public Use
  Company Number: DE-CIPLA LTD.-2016DE06528

PATIENT

DRUGS (8)
  1. OXALIPLATIN. [Suspect]
     Active Substance: OXALIPLATIN
     Dosage: UNK
     Route: 065
  2. IRINOTECAN [Suspect]
     Active Substance: IRINOTECAN
     Indication: HEPATOBILIARY CANCER
     Dosage: 75 MG/M2, 90-MIN INFUSION ON DAYS 1 AND 8, 21-DAY CYCLE
     Route: 042
  3. CAPECITABINE. [Suspect]
     Active Substance: CAPECITABINE
     Dosage: UNK
     Route: 065
  4. PIOGLITAZONE. [Suspect]
     Active Substance: PIOGLITAZONE
     Dosage: UNK
     Route: 065
  5. GEMCITABINE [Suspect]
     Active Substance: GEMCITABINE\GEMCITABINE HYDROCHLORIDE
     Indication: HEPATOBILIARY CANCER
     Dosage: 1000 MG/M2, 30-MIN INFUSION ON DAYS 1 AND 8, 21-DAY CYCLE
     Route: 042
  6. FLUOROURACIL. [Suspect]
     Active Substance: FLUOROURACIL
     Indication: HEPATOBILIARY CANCER
     Dosage: 2000 MG/M2, CONTINUOUS 24 H ON DAYS 1 AND 8, 21-DAY CYCLE
  7. ROFECOXIB [Suspect]
     Active Substance: ROFECOXIB
     Dosage: UNK
     Route: 065
  8. GEMCITABINE [Suspect]
     Active Substance: GEMCITABINE\GEMCITABINE HYDROCHLORIDE
     Dosage: UNK, PRIOR CHEMOTHERAPY
     Route: 065

REACTIONS (1)
  - Disease progression [Unknown]
